FAERS Safety Report 25946627 (Version 1)
Quarter: 2025Q4

REPORT INFORMATION
  Report Type: Spontaneous
  Country: EU (occurrence: EU)
  Receive Date: 20251022
  Receipt Date: 20251022
  Transmission Date: 20260117
  Serious: Yes (Hospitalization)
  Sender: Onesource Specialty Pharma
  Company Number: EU-STRIDES ARCOLAB LIMITED-2025OS000970

PATIENT
  Sex: Female

DRUGS (3)
  1. ACETYLCYSTEINE [Suspect]
     Active Substance: ACETYLCYSTEINE
     Indication: Toxicity to various agents
     Dosage: UNK
     Route: 065
  2. ACETYLCYSTEINE [Suspect]
     Active Substance: ACETYLCYSTEINE
     Indication: Overdose
  3. ACETAMINOPHEN [Concomitant]
     Active Substance: ACETAMINOPHEN
     Indication: Product used for unknown indication
     Dosage: 56 GRAM
     Route: 048

REACTIONS (1)
  - Laboratory test interference [Unknown]
